FAERS Safety Report 7981818-5 (Version None)
Quarter: 2011Q4

REPORT INFORMATION
  Report Type: 
  Country: None (occurrence: None)
  Receive Date: 20111213
  Receipt Date: 20111205
  Transmission Date: 20120403
  Serious: Yes (Disabling)
  Sender: FDA-Public Use
  Company Number: 2011MA017233

PATIENT
  Age: 59 Year
  Sex: Male
  Weight: 88.905 kg

DRUGS (5)
  1. ASPIRIN [Concomitant]
  2. PLAVIX [Concomitant]
  3. PROPRANOLOL HYDROCHLORIDE [Suspect]
     Indication: ESSENTIAL TREMOR
     Dosage: 120 MG; BID; PO
     Route: 048
     Dates: start: 20111103, end: 20111108
  4. LIDOCAINE [Concomitant]
  5. HYDROCHLOROTHIAZIDE [Concomitant]

REACTIONS (9)
  - IMPAIRED WORK ABILITY [None]
  - CHEST PAIN [None]
  - HEART RATE INCREASED [None]
  - PRODUCT SUBSTITUTION ISSUE [None]
  - DISTURBANCE IN ATTENTION [None]
  - IRRITABILITY [None]
  - ANXIETY [None]
  - TREMOR [None]
  - CONDITION AGGRAVATED [None]
